FAERS Safety Report 11646265 (Version 2)
Quarter: 2017Q2

REPORT INFORMATION
  Report Type: Spontaneous
  Country: US (occurrence: US)
  Receive Date: 20151020
  Receipt Date: 20170501
  Transmission Date: 20170829
  Serious: No
  Sender: FDA-Public Use
  Company Number: US-ROCHE-1617319

PATIENT
  Age: 80 Year
  Sex: Female

DRUGS (2)
  1. ESBRIET [Suspect]
     Active Substance: PIRFENIDONE
     Route: 048
     Dates: start: 20150409
  2. ESBRIET [Suspect]
     Active Substance: PIRFENIDONE
     Indication: IDIOPATHIC PULMONARY FIBROSIS
     Route: 048
     Dates: start: 2014

REACTIONS (2)
  - Rash pruritic [Unknown]
  - Alopecia [Unknown]

NARRATIVE: CASE EVENT DATE: 20150727
